FAERS Safety Report 4515447-2 (Version None)
Quarter: 2004Q4

REPORT INFORMATION
  Report Type: 
  Country: None (occurrence: None)
  Receive Date: 20041116
  Receipt Date: 20041111
  Transmission Date: 20050328
  Serious: Yes (Other)
  Sender: FDA-Public Use
  Company Number: 2004091800

PATIENT
  Age: 42 Year
  Sex: Female
  Weight: 76.2043 kg

DRUGS (9)
  1. CLEOCIN HCL [Suspect]
     Indication: ILL-DEFINED DISORDER
     Dosage: SEE IMAGE
     Route: 048
     Dates: start: 20041017
  2. CLEOCIN HCL [Suspect]
     Indication: ILL-DEFINED DISORDER
     Dosage: SEE IMAGE
     Route: 048
     Dates: start: 20041105
  3. FENTANYL [Concomitant]
  4. ESOMEPRAZOLE (ESOMEPRAZOLE) [Concomitant]
  5. AMITRIPTYLINE HYDROCHLORIDE [Concomitant]
  6. DOCUSATE SODUIM (DOCUSATE SODIUM) [Concomitant]
  7. FIBRE, DIETARY (FIBRE, DIETARY) [Concomitant]
  8. SALBUMATOL (SALBUMATOL) [Concomitant]
  9. SERETIDE MITE (FLUTICASONE PROPIONATE, SALMETEROL XINAFOATE) [Concomitant]

REACTIONS (6)
  - ABDOMINAL PAIN UPPER [None]
  - DIARRHOEA [None]
  - DYSPEPSIA [None]
  - HYPERSENSITIVITY [None]
  - LUNG INFECTION [None]
  - VOMITING [None]
